FAERS Safety Report 16989000 (Version 1)
Quarter: 2019Q4

REPORT INFORMATION
  Report Type: Spontaneous
  Country: LU (occurrence: LU)
  Receive Date: 20191104
  Receipt Date: 20191104
  Transmission Date: 20200122
  Serious: Yes (Other)
  Sender: FDA-Public Use
  Company Number: LU-SA-2019SA295740

PATIENT
  Sex: Female

DRUGS (1)
  1. ELOXATIN [Suspect]
     Active Substance: OXALIPLATIN
     Dosage: UNK
     Dates: start: 201901

REACTIONS (3)
  - Muscle spasms [Unknown]
  - Extrapyramidal disorder [Unknown]
  - Nausea [Unknown]
